FAERS Safety Report 9034393 (Version 1)
Quarter: 2013Q1

REPORT INFORMATION
  Report Type: Spontaneous
  Country: US (occurrence: US)
  Receive Date: 20130128
  Receipt Date: 20130128
  Transmission Date: 20140127
  Serious: Yes (Hospitalization, Other)
  Sender: FDA-Public Use
  Company Number: US-AMGEN-USASP2012066965

PATIENT
  Age: 76 Year
  Sex: Female

DRUGS (8)
  1. PROLIA [Suspect]
     Indication: OSTEOPENIA
     Dosage: UNK
     Dates: start: 201104
  2. PROLIA [Suspect]
     Dosage: UNK
     Dates: start: 201110
  3. PROLIA [Suspect]
     Dosage: UNK
     Dates: start: 201205
  4. CALCIUM [Concomitant]
     Dosage: UNK
  5. VITAMIN D /00107901/ [Concomitant]
     Dosage: UNK
  6. HYDROCODONE [Concomitant]
     Indication: BACK PAIN
     Dosage: UNK UNK, PRN
  7. HYDROCODONE [Concomitant]
     Indication: PAIN IN EXTREMITY
  8. DIURETICS [Concomitant]

REACTIONS (8)
  - Spinal laminectomy [Unknown]
  - Vertebroplasty [Unknown]
  - Arthralgia [Unknown]
  - Toothache [Recovering/Resolving]
  - Tooth disorder [Unknown]
  - Back pain [Unknown]
  - Mastication disorder [Unknown]
  - Pain in extremity [Unknown]
